FAERS Safety Report 5347095-9 (Version None)
Quarter: 2007Q2

REPORT INFORMATION
  Report Type: 
  Country: None (occurrence: None)
  Receive Date: 20070604
  Receipt Date: 20070524
  Transmission Date: 20071010
  Serious: Yes (Other)
  Sender: FDA-Public Use
  Company Number: 2007SP010398

PATIENT
  Age: 41 Year
  Sex: Male

DRUGS (4)
  1. RIBAVIRIN (S-P) [Suspect]
     Indication: HEPATITIS C
     Dosage: PO
     Route: 048
  2. INTERFERON [Suspect]
     Indication: HEPATITIS C
  3. LAMOTRIGINE [Suspect]
     Indication: BIPOLAR II DISORDER
     Dosage: SEE IMAGE
  4. FILGRASTIM [Suspect]
     Indication: NEUTROPENIA
     Dosage: 300 MCG; BIW

REACTIONS (13)
  - ANAEMIA [None]
  - DEPRESSION [None]
  - DRUG INEFFECTIVE [None]
  - FATIGUE [None]
  - IMPAIRED WORK ABILITY [None]
  - IRRITABILITY [None]
  - LEUKOPENIA [None]
  - LOSS OF EMPLOYMENT [None]
  - NEUTROPENIA [None]
  - POOR QUALITY SLEEP [None]
  - SOCIAL PROBLEM [None]
  - STEVENS-JOHNSON SYNDROME [None]
  - SUICIDAL IDEATION [None]
